FAERS Safety Report 15367603 (Version 4)
Quarter: 2018Q4

REPORT INFORMATION
  Report Type: Spontaneous
  Country: PL (occurrence: PL)
  Receive Date: 20180910
  Receipt Date: 20181221
  Transmission Date: 20190204
  Serious: Yes (Hospitalization, Other)
  Sender: FDA-Public Use
  Company Number: PL-GILEAD-2018-0361789

PATIENT
  Age: 27 Year
  Sex: Female

DRUGS (3)
  1. HARVONI [Suspect]
     Active Substance: LEDIPASVIR\SOFOSBUVIR
     Indication: HEPATITIS C
     Dosage: 1 DF
     Route: 048
     Dates: start: 20180801, end: 20180902
  2. COPEGUS [Concomitant]
     Active Substance: RIBAVIRIN
  3. EUTHYROX [Concomitant]
     Active Substance: LEVOTHYROXINE SODIUM

REACTIONS (5)
  - Toxic epidermal necrolysis [Recovered/Resolved]
  - Oedema [Recovered/Resolved]
  - Dysphagia [Recovered/Resolved]
  - Skin toxicity [Recovered/Resolved]
  - Overgrowth bacterial [Recovered/Resolved]

NARRATIVE: CASE EVENT DATE: 20180827
